FAERS Safety Report 9782632 (Version 2)
Quarter: 2014Q1

REPORT INFORMATION
  Report Type: Spontaneous
  Country: US (occurrence: US)
  Receive Date: 20131226
  Receipt Date: 20140204
  Transmission Date: 20141002
  Serious: No
  Sender: FDA-Public Use
  Company Number: US-009507513-1312USA008414

PATIENT
  Age: 51 Year
  Sex: Female
  Weight: 54.42 kg

DRUGS (1)
  1. CLARITIN REDITABS [Suspect]
     Indication: TONGUE DISORDER
     Dosage: 1 DF, Q12H
     Route: 048
     Dates: start: 201304, end: 201304

REACTIONS (4)
  - Urticaria [Unknown]
  - Pruritus [Recovered/Resolved]
  - Dry skin [Recovered/Resolved]
  - Off label use [Unknown]
